FAERS Safety Report 6434631-4 (Version None)
Quarter: 2009Q4

REPORT INFORMATION
  Report Type: 
  Country: None (occurrence: None)
  Receive Date: 20091110
  Receipt Date: 20091104
  Transmission Date: 20100525
  Serious: Yes (Hospitalization)
  Sender: FDA-Public Use
  Company Number: B0602110A

PATIENT

DRUGS (2)
  1. FLUTIDE DISKUS [Suspect]
     Indication: INTERSTITIAL LUNG DISEASE
     Dosage: 1200MCG UNKNOWN
     Route: 055
  2. SINGULAIR [Concomitant]
     Indication: INTERSTITIAL LUNG DISEASE
     Route: 048

REACTIONS (2)
  - COUGH [None]
  - DECREASED APPETITE [None]
